FAERS Safety Report 19541411 (Version 2)
Quarter: 2021Q3

REPORT INFORMATION
  Report Type: Spontaneous
  Country: ES (occurrence: ES)
  Receive Date: 20210713
  Receipt Date: 20210922
  Transmission Date: 20211014
  Serious: Yes (Hospitalization, Other)
  Sender: FDA-Public Use
  Company Number: ES-009507513-2107ESP002062

PATIENT
  Age: 53 Year
  Sex: Male
  Weight: 77 kg

DRUGS (2)
  1. PEMBROLIZUMAB. [Suspect]
     Active Substance: PEMBROLIZUMAB
     Indication: CLEAR CELL RENAL CELL CARCINOMA
     Dosage: 2 MG/KG, IV, EVERY 21 DAYS
     Route: 042
     Dates: start: 20201113, end: 20210115
  2. AXITINIB [Suspect]
     Active Substance: AXITINIB
     Indication: CLEAR CELL RENAL CELL CARCINOMA
     Dosage: 7 MG/12H
     Route: 048
     Dates: start: 20201113

REACTIONS (2)
  - Immune-mediated hepatic disorder [Recovered/Resolved]
  - Drug-induced liver injury [Recovered/Resolved]

NARRATIVE: CASE EVENT DATE: 20210115
